FAERS Safety Report 9587832 (Version 1)
Quarter: 2013Q4

REPORT INFORMATION
  Report Type: Spontaneous
  Country: US (occurrence: US)
  Receive Date: 20131003
  Receipt Date: 20131003
  Transmission Date: 20140711
  Serious: Yes (Other)
  Sender: FDA-Public Use
  Company Number: US-BAXTER-2013BAX038574

PATIENT
  Sex: Male

DRUGS (5)
  1. CYCLOPHOSPHAMIDE FOR INJECTION, USP [Suspect]
     Indication: FOETAL EXPOSURE TIMING UNSPECIFIED
     Dosage: AT 8, 5, AND 2 WEEKS PRIOR TO DELIVERY
     Route: 064
  2. RITUXIMAB [Suspect]
     Indication: FOETAL EXPOSURE TIMING UNSPECIFIED
     Dosage: AT 8, 5, AND 2 WEEKS PRIOR TO DELIVERY
     Route: 064
  3. DOXORUBICIN [Suspect]
     Indication: FOETAL EXPOSURE TIMING UNSPECIFIED
     Dosage: AT 8, 5, AND 2 WEEKS PRIOR TO DELIVERY
     Route: 064
  4. VINCRISTINE [Suspect]
     Indication: FOETAL EXPOSURE TIMING UNSPECIFIED
     Dosage: AT 8, 5, AND 2 WEEKS PRIOR TO DELIVERY
     Route: 064
  5. PREDNISONE [Suspect]
     Indication: FOETAL EXPOSURE TIMING UNSPECIFIED
     Dosage: AT 8, 5, AND 2 WEEKS PRIOR TO DELIVERY
     Route: 064

REACTIONS (3)
  - Foetal exposure during pregnancy [Recovered/Resolved]
  - Lymphopenia [Recovered/Resolved]
  - Hypogammaglobulinaemia [Recovered/Resolved]
